FAERS Safety Report 4951169-1 (Version None)
Quarter: 2006Q1

REPORT INFORMATION
  Report Type: 
  Country: None (occurrence: None)
  Receive Date: 20060130
  Receipt Date: 20050302
  Transmission Date: 20060701
  Serious: Yes (Hospitalization)
  Sender: FDA-Public Use
  Company Number: 141509USA

PATIENT
  Age: 56 Year
  Sex: Female

DRUGS (2)
  1. BETESERON (INTERFERON BETA-1B) [Suspect]
     Indication: MULTIPLE SCLEROSIS
     Dates: start: 20030501, end: 20041201
  2. COPAXONE [Suspect]
     Indication: MULTIPLE SCLEROSIS
     Dates: start: 20050101, end: 20050125

REACTIONS (8)
  - ABASIA [None]
  - AMNESIA [None]
  - COMA [None]
  - FATIGUE [None]
  - MULTIPLE SCLEROSIS [None]
  - MULTIPLE SCLEROSIS RELAPSE [None]
  - PNEUMONIA [None]
  - PYREXIA [None]
